FAERS Safety Report 4961223-6 (Version None)
Quarter: 2006Q1

REPORT INFORMATION
  Report Type: 
  Country: None (occurrence: None)
  Receive Date: 20060329
  Receipt Date: 20060316
  Transmission Date: 20060701
  Serious: Yes (Other)
  Sender: FDA-Public Use
  Company Number: 2006041076

PATIENT
  Age: 81 Year
  Sex: Female

DRUGS (1)
  1. BENGAY (MENTHOL) [Suspect]
     Dosage: UNSPECIFIED AMOUNT 4-5 TIMES

REACTIONS (1)
  - CEREBROVASCULAR ACCIDENT [None]
